FAERS Safety Report 11374664 (Version 1)
Quarter: 2015Q3

REPORT INFORMATION
  Report Type: Spontaneous
  Country: US (occurrence: None)
  Receive Date: 20150812
  Receipt Date: 20150812
  Transmission Date: 20151125
  Serious: Yes (Hospitalization)
  Sender: FDA-Public Use
  Company Number: None

PATIENT
  Age: 65 Year
  Sex: Male
  Weight: 138.3 kg

DRUGS (1)
  1. WARFARIN [Suspect]
     Active Substance: WARFARIN
     Dosage: MG   PO
     Route: 048
     Dates: start: 20150510

REACTIONS (5)
  - Concussion [None]
  - Loss of consciousness [None]
  - Joint effusion [None]
  - Ecchymosis [None]
  - Fall [None]

NARRATIVE: CASE EVENT DATE: 20150510
